FAERS Safety Report 6035801-X (Version None)
Quarter: 2009Q1

REPORT INFORMATION
  Report Type: 
  Country: None (occurrence: None)
  Receive Date: 20090113
  Receipt Date: 20090102
  Transmission Date: 20090719
  Serious: Yes (Hospitalization)
  Sender: FDA-Public Use
  Company Number: FR-PFIZER INC-2009152367

PATIENT

DRUGS (6)
  1. AMLOR [Suspect]
     Indication: HYPERTENSION
     Route: 048
     Dates: end: 20080611
  2. ESCITALOPRAM [Suspect]
     Indication: ANXIETY
     Dosage: UNK
     Route: 048
  3. SOLIAN [Suspect]
     Dosage: UNK
     Route: 048
  4. RILMENIDINE [Suspect]
     Indication: HYPERTENSION
     Dosage: UNK
     Route: 048
  5. MEPRONIZINE [Suspect]
     Indication: INSOMNIA
     Dosage: UNK
     Route: 048
  6. DI-ANTALVIC [Suspect]
     Indication: NECK PAIN
     Dosage: UNK
     Route: 048
     Dates: start: 20080609

REACTIONS (1)
  - ORTHOSTATIC HYPOTENSION [None]
